FAERS Safety Report 6306634-1 (Version None)
Quarter: 2009Q3

REPORT INFORMATION
  Report Type: 
  Country: None (occurrence: None)
  Receive Date: 20090812
  Receipt Date: 20090806
  Transmission Date: 20100115
  Serious: Yes (Hospitalization)
  Sender: FDA-Public Use
  Company Number: B0583282A

PATIENT
  Sex: Male

DRUGS (9)
  1. AUGMENTIN '125' [Suspect]
     Indication: NAIL INFECTION
     Dosage: 1G PER DAY
     Route: 048
     Dates: start: 20090526, end: 20090531
  2. TRILEPTAL [Suspect]
     Indication: EPILEPSY
     Dosage: 150MG PER DAY
     Route: 048
     Dates: start: 20090528, end: 20090531
  3. LIORESAL [Concomitant]
     Dosage: 30MG THREE TIMES PER DAY
     Route: 048
     Dates: start: 20081201
  4. DIHYDAN [Concomitant]
     Indication: EPILEPSY
     Dosage: 100MG THREE TIMES PER DAY
     Route: 048
     Dates: start: 20090526
  5. JOSIR [Concomitant]
     Indication: PROSTATIC ADENOMA
     Dosage: .4MG PER DAY
     Route: 048
     Dates: start: 20090101
  6. VITAMIN B1 + VITAMIN B6 [Concomitant]
     Dosage: 2TAB TWICE PER DAY
     Route: 048
     Dates: start: 20090524
  7. FORLAX [Concomitant]
     Indication: CONSTIPATION
     Dosage: 20G PER DAY
     Route: 048
  8. NORMACOL [Concomitant]
     Indication: CONSTIPATION
     Dosage: 1UNIT PER DAY
     Route: 054
     Dates: start: 20090101, end: 20090501
  9. EFFERALGAN [Concomitant]
     Dosage: 1G PER DAY
     Route: 048

REACTIONS (7)
  - COUGH [None]
  - DRUG ERUPTION [None]
  - GENERALISED ERYTHEMA [None]
  - MIXED LIVER INJURY [None]
  - PYREXIA [None]
  - RASH ERYTHEMATOUS [None]
  - TACHYCARDIA [None]
